FAERS Safety Report 8272123-0 (Version None)
Quarter: 2012Q2

REPORT INFORMATION
  Report Type: 
  Country: None (occurrence: None)
  Receive Date: 20120410
  Receipt Date: 20120118
  Transmission Date: 20120825
  Serious: No
  Sender: FDA-Public Use
  Company Number: US-ASTRAZENECA-2012SE03469

PATIENT
  Age: 52 Year
  Sex: Female

DRUGS (1)
  1. VANDETANIB [Suspect]
     Indication: THYROID DISORDER
     Route: 048

REACTIONS (7)
  - ABDOMINAL PAIN [None]
  - DIARRHOEA [None]
  - LIP PAIN [None]
  - RASH [None]
  - DRY EYE [None]
  - NAUSEA [None]
  - GLOSSODYNIA [None]
